FAERS Safety Report 4292216-2 (Version None)
Quarter: 2004Q1

REPORT INFORMATION
  Report Type: 
  Country: None (occurrence: None)
  Receive Date: 20040126
  Receipt Date: 20030826
  Transmission Date: 20041129
  Serious: No
  Sender: FDA-Public Use
  Company Number: USA030845515

PATIENT
  Age: 56 Year
  Sex: Female

DRUGS (2)
  1. FORTEO [Suspect]
     Indication: BONE DENSITY DECREASED
     Dosage: 20 UG/DAY
     Dates: start: 20030730
  2. SYNTHROID [Concomitant]

REACTIONS (5)
  - ANXIETY [None]
  - ARTHROPATHY [None]
  - DEPRESSION [None]
  - DRUG HYPERSENSITIVITY [None]
  - URINARY TRACT INFECTION [None]
